FAERS Safety Report 6665927-9 (Version None)
Quarter: 2010Q1

REPORT INFORMATION
  Report Type: 
  Country: None (occurrence: None)
  Receive Date: 20100326
  Receipt Date: 20090604
  Transmission Date: 20100710
  Serious: Yes (Other)
  Sender: FDA-Public Use
  Company Number: 2009SU0129

PATIENT
  Age: 82 Year
  Sex: Male
  Weight: 108.8633 kg

DRUGS (7)
  1. SULAR [Suspect]
     Indication: HYPERTENSION
     Dosage: 17 MG, DAILY17MG, DAILY
     Dates: start: 20090528, end: 20090603
  2. SULAR [Suspect]
     Indication: HYPERTENSION
     Dates: start: 20090605
  3. ASPIRIN [Concomitant]
  4. METALZONE [Concomitant]
  5. WATER PILL [Concomitant]
  6. UNSPECIFIED PROSTATE MEDICATION [Concomitant]
  7. . [Concomitant]

REACTIONS (4)
  - BLOOD PRESSURE INCREASED [None]
  - DRUG ADMINISTRATION ERROR [None]
  - DRUG INEFFECTIVE [None]
  - OEDEMA PERIPHERAL [None]
